FAERS Safety Report 5319331-6 (Version None)
Quarter: 2007Q2

REPORT INFORMATION
  Report Type: 
  Country: None (occurrence: None)
  Receive Date: 20070508
  Receipt Date: 20070426
  Transmission Date: 20071010
  Serious: Yes (Hospitalization)
  Sender: FDA-Public Use
  Company Number: JP-PFIZER INC-2007034210

PATIENT
  Age: 65 Year
  Sex: Male

DRUGS (2)
  1. CABASER [Suspect]
     Indication: PARKINSON'S DISEASE
  2. PERMAX [Concomitant]

REACTIONS (2)
  - CARDIAC VALVE DISEASE [None]
  - POSTURE ABNORMAL [None]
